FAERS Safety Report 17860082 (Version 29)
Quarter: 2024Q2

REPORT INFORMATION
  Report Type: Other
  Country: CA (occurrence: None)
  Receive Date: 20200604
  Receipt Date: 20240514
  Transmission Date: 20240716
  Serious: Yes (Hospitalization, Other)
  Sender: FDA-Public Use
  Company Number: CA-ROCHE-2614798

PATIENT
  Age: 53 Year
  Sex: Female

DRUGS (13)
  1. OCREVUS [Suspect]
     Active Substance: OCRELIZUMAB
     Indication: Primary progressive multiple sclerosis
     Dosage: 300 MG AT DAY 0 AND 14, THEN 600 MG EVERY 6 MONTH
     Route: 042
     Dates: start: 20180730
  2. TYLENOL [Suspect]
     Active Substance: ACETAMINOPHEN
     Indication: Product used for unknown indication
     Route: 065
  3. DULOXETINE [Concomitant]
     Active Substance: DULOXETINE
     Indication: Pain
  4. GABAPENTIN [Concomitant]
     Active Substance: GABAPENTIN
  5. CIPRALEX [Concomitant]
     Active Substance: ESCITALOPRAM OXALATE
  6. GLUCOSAMINE [Concomitant]
     Active Substance: GLUCOSAMINE
  7. CALCIUM [Concomitant]
     Active Substance: CALCIUM
  8. OMEGA 3 [Concomitant]
     Active Substance: CAPSAICIN
  9. PRAMIPEXOLE [Concomitant]
     Active Substance: PRAMIPEXOLE\PRAMIPEXOLE DIHYDROCHLORIDE
  10. MIRABEGRON [Concomitant]
     Active Substance: MIRABEGRON
  11. PANTOPRAZOLE [Concomitant]
     Active Substance: PANTOPRAZOLE
  12. PERINDOPRIL [Concomitant]
     Active Substance: PERINDOPRIL
  13. AMLODIPINE [Concomitant]
     Active Substance: AMLODIPINE BESYLATE

REACTIONS (47)
  - Polyp [Unknown]
  - Genital herpes [Recovering/Resolving]
  - Uveitis [Recovered/Resolved]
  - Urinary retention [Unknown]
  - Fibromyalgia [Not Recovered/Not Resolved]
  - Herpes virus infection [Recovered/Resolved]
  - Norovirus infection [Recovered/Resolved]
  - Arthritis [Not Recovered/Not Resolved]
  - Paraesthesia [Recovered/Resolved]
  - Nervousness [Unknown]
  - Tooth fracture [Recovering/Resolving]
  - Nasopharyngitis [Unknown]
  - Oropharyngeal pain [Recovered/Resolved]
  - Pyrexia [Recovered/Resolved]
  - Pain [Not Recovered/Not Resolved]
  - Scar [Not Recovered/Not Resolved]
  - Dry eye [Not Recovered/Not Resolved]
  - Blepharospasm [Unknown]
  - Vision blurred [Unknown]
  - Arthralgia [Not Recovered/Not Resolved]
  - Micturition urgency [Unknown]
  - Joint injury [Unknown]
  - Joint effusion [Unknown]
  - Cough [Unknown]
  - Throat irritation [Unknown]
  - Meniscus injury [Not Recovered/Not Resolved]
  - Brain fog [Unknown]
  - Memory impairment [Not Recovered/Not Resolved]
  - Disturbance in attention [Not Recovered/Not Resolved]
  - Fatigue [Recovering/Resolving]
  - Neuralgia [Recovered/Resolved]
  - Periarthritis [Recovered/Resolved]
  - Cognitive disorder [Not Recovered/Not Resolved]
  - Impaired work ability [Unknown]
  - Myoclonus [Not Recovered/Not Resolved]
  - Confusional state [Not Recovered/Not Resolved]
  - Insomnia [Not Recovered/Not Resolved]
  - Pain in extremity [Unknown]
  - Herpes virus infection [Unknown]
  - Hypoaesthesia [Not Recovered/Not Resolved]
  - Hypoaesthesia oral [Not Recovered/Not Resolved]
  - Hypertension [Unknown]
  - Gait disturbance [Unknown]
  - Tendon discomfort [Not Recovered/Not Resolved]
  - Blood pressure increased [Unknown]
  - Memory impairment [Unknown]
  - Off label use [Unknown]

NARRATIVE: CASE EVENT DATE: 20190201
